FAERS Safety Report 5403416-X (Version None)
Quarter: 2007Q3

REPORT INFORMATION
  Report Type: 
  Country: None (occurrence: None)
  Receive Date: 20070713
  Receipt Date: 20070423
  Transmission Date: 20080115
  Serious: Yes (Hospitalization)
  Sender: FDA-Public Use
  Company Number: US-JNJFOC-20061102117

PATIENT
  Age: 23 Year
  Sex: Female
  Weight: 92.5338 kg

DRUGS (1)
  1. ORTHO EVRA [Suspect]
     Indication: DRUG USE FOR UNKNOWN INDICATION
     Dosage: TRANSDERMAL
     Route: 062
     Dates: start: 20021201, end: 20041030

REACTIONS (3)
  - DEEP VEIN THROMBOSIS [None]
  - NAUSEA [None]
  - VENOUS THROMBOSIS LIMB [None]
